FAERS Safety Report 9582489 (Version 1)
Quarter: 2013Q4

REPORT INFORMATION
  Report Type: Spontaneous
  Country: US (occurrence: US)
  Receive Date: 20131002
  Receipt Date: 20131002
  Transmission Date: 20140711
  Serious: No
  Sender: FDA-Public Use
  Company Number: US-AMGEN-USASP2013041035

PATIENT
  Age: 53 Year
  Sex: Male
  Weight: 108.84 kg

DRUGS (12)
  1. ENBREL [Suspect]
     Indication: PRODUCT USED FOR UNKNOWN INDICATION
     Dosage: 50 MG, QWK
     Route: 058
  2. ALLOPURINOL [Concomitant]
     Dosage: 300 MG, UNK
  3. ASA [Concomitant]
     Dosage: 81 MG, EC, UNK
  4. CRESTOR [Concomitant]
     Dosage: 10 MG, UNK
  5. LEFLUNOMIDE [Concomitant]
     Dosage: 10 MG, UNK
  6. LISINOPRIL [Concomitant]
     Dosage: 5 MG, UNK
  7. METOPROLOL [Concomitant]
     Dosage: 50 MG, ER, UNK
  8. MULTIVITAMINS, PLAIN [Concomitant]
     Dosage: UNK
  9. HYDROCHLOROTHIAZIDE [Concomitant]
     Dosage: 50 MG, UNK
  10. CLOPIDOGREL [Concomitant]
     Dosage: 75 MG, UNK
  11. SPIRONOLACTON [Concomitant]
     Dosage: 50 MG, UNK
  12. NITROSTAT [Concomitant]
     Dosage: 0.3 MG, SUB, UNK

REACTIONS (2)
  - Contusion [Unknown]
  - Injection site pain [Unknown]
